FAERS Safety Report 11639847 (Version 1)
Quarter: 2015Q4

REPORT INFORMATION
  Report Type: Spontaneous
  Country: US (occurrence: None)
  Receive Date: 20151016
  Receipt Date: 20151016
  Transmission Date: 20160304
  Serious: No
  Sender: FDA-Public Use
  Company Number: None

PATIENT
  Age: 63 Year
  Sex: Male
  Weight: 138.4 kg

DRUGS (3)
  1. CIPRO [Concomitant]
     Active Substance: CIPROFLOXACIN HYDROCHLORIDE
  2. ACYCLOVIR. [Concomitant]
     Active Substance: ACYCLOVIR
  3. VELCADE [Suspect]
     Active Substance: BORTEZOMIB
     Dates: end: 20150910

REACTIONS (1)
  - Hepatic steatosis [None]

NARRATIVE: CASE EVENT DATE: 20151007
